FAERS Safety Report 9286582 (Version 1)
Quarter: 2013Q2

REPORT INFORMATION
  Report Type: Other
  Country: GB (occurrence: GB)
  Receive Date: 20130513
  Receipt Date: 20130513
  Transmission Date: 20140414
  Serious: Yes (Hospitalization, Other)
  Sender: FDA-Public Use
  Company Number: GB-ACTAVIS-2013-08032

PATIENT
  Age: 68 Year
  Sex: Male

DRUGS (2)
  1. PARACETAMOL (UNKNOWN) [Suspect]
     Indication: PRODUCT USED FOR UNKNOWN INDICATION
     Dosage: UNK
     Route: 065
  2. CLOZARIL [Suspect]
     Indication: SCHIZOPHRENIA
     Dosage: UNK
     Route: 065
     Dates: start: 20051014

REACTIONS (4)
  - Sepsis [Unknown]
  - Hepatic function abnormal [Unknown]
  - Overdose [Unknown]
  - General physical condition abnormal [Unknown]
